FAERS Safety Report 15790494 (Version 1)
Quarter: 2019Q1

REPORT INFORMATION
  Report Type: Spontaneous
  Country: US (occurrence: US)
  Receive Date: 20190104
  Receipt Date: 20190104
  Transmission Date: 20190417
  Serious: Yes (Death)
  Sender: FDA-Public Use
  Company Number: None

PATIENT
  Age: 43 Year
  Sex: Male

DRUGS (10)
  1. OXYCODONE [Concomitant]
     Active Substance: OXYCODONE
  2. LITHIUM CARB [Concomitant]
     Active Substance: LITHIUM CARBONATE
  3. XALKORI [Suspect]
     Active Substance: CRIZOTINIB
     Indication: ILL-DEFINED DISORDER
     Route: 048
     Dates: start: 20181201
  4. PROCHLORPER [Concomitant]
  5. ELIQUIS [Concomitant]
     Active Substance: APIXABAN
  6. FENTANYL. [Concomitant]
     Active Substance: FENTANYL
  7. DICLOFENAC [Concomitant]
     Active Substance: DICLOFENAC
  8. LORAZEPAM. [Concomitant]
     Active Substance: LORAZEPAM
  9. ONDANSETRON [Concomitant]
     Active Substance: ONDANSETRON
  10. LEVOTHYROXIN [Concomitant]
     Active Substance: LEVOTHYROXINE

REACTIONS (1)
  - Death [None]
